FAERS Safety Report 7934090-6 (Version None)
Quarter: 2011Q4

REPORT INFORMATION
  Report Type: 
  Country: None (occurrence: None)
  Receive Date: 20111122
  Receipt Date: 20110721
  Transmission Date: 20120403
  Serious: No
  Sender: FDA-Public Use
  Company Number: US-BAYER-2011-063495

PATIENT
  Age: 56 Year
  Sex: Male

DRUGS (3)
  1. LEVITRA [Suspect]
     Indication: ERECTILE DYSFUNCTION
     Dosage: 10 MG, PRN
     Route: 048
     Dates: start: 20110704, end: 20110720
  2. CIALIS [Concomitant]
  3. VIAGRA [Concomitant]

REACTIONS (1)
  - DRUG INEFFECTIVE [None]
